FAERS Safety Report 10841346 (Version 1)
Quarter: 2015Q1

REPORT INFORMATION
  Report Type: Spontaneous
  Country: US (occurrence: US)
  Receive Date: 20150220
  Receipt Date: 20150220
  Transmission Date: 20150721
  Serious: No
  Sender: FDA-Public Use
  Company Number: US-TEVA-488718USA

PATIENT
  Sex: Female

DRUGS (1)
  1. TAMOXIFEN [Suspect]
     Active Substance: TAMOXIFEN

REACTIONS (5)
  - Headache [Unknown]
  - Hypersensitivity [Unknown]
  - Nausea [Unknown]
  - Rash [Unknown]
  - Pruritus [Unknown]
